FAERS Safety Report 9851392 (Version 4)
Quarter: 2014Q1

REPORT INFORMATION
  Report Type: Spontaneous
  Country: FI (occurrence: FI)
  Receive Date: 20140129
  Receipt Date: 20140216
  Transmission Date: 20141002
  Serious: Yes (Other)
  Sender: FDA-Public Use
  Company Number: FI-009507513-1401FIN005257

PATIENT
  Age: 70 Year
  Sex: Male

DRUGS (4)
  1. INTRONA [Suspect]
     Indication: MELANOMA RECURRENT
     Dosage: STRENGTH 60 MIU
     Route: 058
     Dates: start: 201211, end: 20130601
  2. INTRONA [Suspect]
     Dosage: STRENGTH 60 MIU
     Dates: start: 20131001
  3. INTRONA [Suspect]
     Dosage: 5MIU THREE TIMES A WEEK , Q3W
     Dates: start: 20140115
  4. PANADOL [Concomitant]

REACTIONS (9)
  - Limb operation [Unknown]
  - Musculoskeletal stiffness [Recovered/Resolved]
  - Neutrophil count decreased [Recovered/Resolved]
  - White blood cell count decreased [Recovered/Resolved]
  - Chills [Recovered/Resolved]
  - Fatigue [Recovered/Resolved]
  - Headache [Recovered/Resolved]
  - Nausea [Unknown]
  - Expired drug administered [Unknown]
